FAERS Safety Report 5179500-5 (Version None)
Quarter: 2006Q4

REPORT INFORMATION
  Report Type: 
  Country: None (occurrence: None)
  Receive Date: 20061211
  Receipt Date: 20061207
  Transmission Date: 20070319
  Serious: Yes (Death)
  Sender: FDA-Public Use
  Company Number: 2006SP008001

PATIENT
  Age: 50 Year
  Sex: Female

DRUGS (1)
  1. TEMODAL [Suspect]
     Indication: GLIOBLASTOMA MULTIFORME
     Dosage: 200 MG;QD;PO
     Route: 048
     Dates: start: 20061102, end: 20061106

REACTIONS (1)
  - DEATH [None]
